FAERS Safety Report 9543879 (Version 1)
Quarter: 2013Q3

REPORT INFORMATION
  Report Type: Spontaneous
  Country: JP (occurrence: JP)
  Receive Date: 20130923
  Receipt Date: 20130923
  Transmission Date: 20140515
  Serious: Yes (Other)
  Sender: FDA-Public Use
  Company Number: JP-GLAXOSMITHKLINE-B0924254A

PATIENT
  Sex: Male

DRUGS (3)
  1. AVOLVE [Suspect]
     Indication: BENIGN PROSTATIC HYPERPLASIA
     Route: 048
     Dates: start: 20130610
  2. ADONA (AC-17) [Concomitant]
     Indication: CYSTITIS
     Route: 048
     Dates: start: 20130420
  3. CRAVIT [Concomitant]
     Indication: CYSTITIS
     Route: 048
     Dates: start: 20130420

REACTIONS (3)
  - Nephrocalcinosis [Not Recovered/Not Resolved]
  - Metabolic disorder [Not Recovered/Not Resolved]
  - Chromaturia [Not Recovered/Not Resolved]
